FAERS Safety Report 6241587-6 (Version None)
Quarter: 2009Q2

REPORT INFORMATION
  Report Type: 
  Country: None (occurrence: None)
  Receive Date: 20090623
  Receipt Date: 20040913
  Transmission Date: 20091009
  Serious: Yes (Hospitalization)
  Sender: FDA-Public Use
  Company Number: DE-ROCHE-380039

PATIENT
  Sex: Male

DRUGS (42)
  1. DACLIZUMAB [Suspect]
     Route: 042
     Dates: start: 20040609
  2. DACLIZUMAB [Suspect]
     Route: 042
     Dates: start: 20040622, end: 20040806
  3. MYCOPHENOLATE MOFETIL [Suspect]
     Route: 048
     Dates: start: 20040609
  4. MYCOPHENOLATE MOFETIL [Suspect]
     Route: 048
     Dates: start: 20040610
  5. MYCOPHENOLATE MOFETIL [Suspect]
     Route: 048
     Dates: start: 20040911, end: 20040912
  6. MYCOPHENOLATE MOFETIL [Suspect]
     Route: 048
     Dates: start: 20041013
  7. TACROLIMUS [Suspect]
     Route: 048
     Dates: start: 20050609
  8. SIROLIMUS [Suspect]
     Dosage: DRUG REPORTED: RAPAMUNE
     Route: 048
     Dates: start: 20040609
  9. SIROLIMUS [Suspect]
     Route: 048
     Dates: start: 20040611
  10. SIROLIMUS [Suspect]
     Route: 048
     Dates: start: 20040619
  11. SIROLIMUS [Suspect]
     Route: 048
     Dates: start: 20040705
  12. SIROLIMUS [Suspect]
     Route: 048
     Dates: start: 20040709
  13. SIROLIMUS [Suspect]
     Route: 048
     Dates: start: 20040719
  14. SIROLIMUS [Suspect]
     Dosage: ROUTE: PL
     Route: 048
     Dates: start: 20040910
  15. PREDNISOLONE [Suspect]
     Route: 042
     Dates: start: 20040609
  16. PREDNISOLONE [Suspect]
     Route: 042
     Dates: start: 20040610, end: 20040611
  17. DECORTIN H [Suspect]
     Route: 048
     Dates: start: 20040611
  18. DECORTIN H [Suspect]
     Route: 048
     Dates: start: 20040624
  19. DECORTIN H [Suspect]
     Route: 048
     Dates: start: 20040718
  20. DECORTIN H [Suspect]
     Route: 048
     Dates: start: 20040724
  21. DECORTIN H [Suspect]
     Route: 048
     Dates: start: 20040921
  22. DECORTIN H [Suspect]
     Route: 048
     Dates: start: 20040922
  23. DECORTIN H [Suspect]
     Route: 048
     Dates: start: 20040923
  24. DECORTIN H [Suspect]
     Route: 048
     Dates: start: 20040924
  25. DECORTIN H [Suspect]
     Route: 048
     Dates: start: 20040925
  26. DECORTIN H [Suspect]
     Route: 048
     Dates: start: 20041009
  27. DECORTIN H [Suspect]
     Route: 048
     Dates: start: 20050609
  28. VALGANCICLOVIR HCL [Concomitant]
     Route: 048
     Dates: start: 20040612, end: 20040911
  29. AMOXICILLIN [Concomitant]
     Route: 048
     Dates: start: 20040723, end: 20040729
  30. AMPHOTERICIN B [Concomitant]
     Route: 050
     Dates: start: 20040610, end: 20040807
  31. CARMEN [Concomitant]
     Route: 048
     Dates: start: 20040705, end: 20040720
  32. CARMEN [Concomitant]
     Route: 048
     Dates: start: 20040806
  33. CIPROBAY [Concomitant]
     Route: 048
     Dates: start: 20040715, end: 20040716
  34. CIPROBAY [Concomitant]
     Route: 048
     Dates: start: 20040723, end: 20040803
  35. METRONIDAZOLE HCL [Concomitant]
     Route: 042
     Dates: start: 20040609, end: 20040610
  36. COTRIM [Concomitant]
     Route: 048
     Dates: start: 20040614, end: 20040720
  37. CYMEVEN [Concomitant]
     Route: 042
     Dates: start: 20040609, end: 20040612
  38. NORVASC [Concomitant]
     Route: 048
     Dates: start: 20040610
  39. NORVASC [Concomitant]
     Route: 048
     Dates: start: 20040910, end: 20050609
  40. ROCEPHIN [Concomitant]
     Route: 042
     Dates: start: 20040609, end: 20040612
  41. TAVANIC [Concomitant]
     Route: 048
     Dates: start: 20040624, end: 20040629
  42. TAVANIC [Concomitant]
     Route: 048
     Dates: start: 20040802, end: 20040808

REACTIONS (4)
  - BLOOD CREATININE INCREASED [None]
  - DEHYDRATION [None]
  - LEUKOPENIA [None]
  - PNEUMONIA [None]
